FAERS Safety Report 9208777 (Version 1)
Quarter: 2013Q2

REPORT INFORMATION
  Report Type: Spontaneous
  Country: US (occurrence: US)
  Receive Date: 20130404
  Receipt Date: 20130404
  Transmission Date: 20140414
  Serious: No
  Sender: FDA-Public Use
  Company Number: US-PFIZER INC-2013103768

PATIENT
  Age: 74 Year
  Sex: Female

DRUGS (13)
  1. INLYTA [Suspect]
     Indication: RENAL CANCER
     Dosage: UNK
     Dates: start: 20130312
  2. AFINITOR [Concomitant]
     Dosage: UNK
  3. LEVOTHROID [Concomitant]
     Dosage: UNK
  4. WARFARIN SODIUM [Concomitant]
     Dosage: UNK
  5. CLINDAMYCIN HYDROCHLORIDE [Concomitant]
     Dosage: UNK
  6. MEGACE ES [Concomitant]
     Dosage: UNK
  7. COD-LIVER OIL [Concomitant]
     Dosage: UNK
  8. OMEPRAZOLE [Concomitant]
     Dosage: UNK
  9. DILTIAZEM HCL ER [Concomitant]
     Dosage: UNK
  10. PRAVASTATIN SODIUM [Concomitant]
     Dosage: UNK
  11. DIOVAN [Concomitant]
     Dosage: UNK
  12. TYLENOL [Concomitant]
     Dosage: UNK
  13. D3-5 [Concomitant]

REACTIONS (2)
  - Pain in extremity [Unknown]
  - Burning sensation [Unknown]
